FAERS Safety Report 9195107 (Version 2)
Quarter: 2013Q2

REPORT INFORMATION
  Report Type: Spontaneous
  Country: CA (occurrence: CA)
  Receive Date: 20130328
  Receipt Date: 20130409
  Transmission Date: 20140414
  Serious: Yes (Hospitalization)
  Sender: FDA-Public Use
  Company Number: CA-AMGEN-CANSP2013019980

PATIENT
  Age: 30 Year
  Sex: Female

DRUGS (4)
  1. ENBREL [Suspect]
     Indication: RHEUMATOID ARTHRITIS
     Dosage: 50 MG, QWK
     Dates: start: 20130116, end: 20130204
  2. VENTOLIN                           /00139501/ [Concomitant]
     Dosage: UNK,PRN
  3. CYMBALTA [Concomitant]
     Dosage: UNK
  4. THYROID PREPARATIONS [Concomitant]
     Dosage: UNK

REACTIONS (1)
  - Atypical pneumonia [Recovering/Resolving]
